FAERS Safety Report 25238964 (Version 1)
Quarter: 2025Q2

REPORT INFORMATION
  Report Type: Spontaneous
  Country: US (occurrence: None)
  Receive Date: 20250424
  Receipt Date: 20250424
  Transmission Date: 20250717
  Serious: No
  Sender: FDA-CTU
  Company Number: None

PATIENT
  Age: 52 Year
  Sex: Male

DRUGS (1)
  1. INFLIXIMAB-ABDA [Suspect]
     Active Substance: INFLIXIMAB-ABDA
     Dates: start: 20250403, end: 20250403

REACTIONS (2)
  - Erythema multiforme [None]
  - Respiratory depression [None]

NARRATIVE: CASE EVENT DATE: 20250403
